FAERS Safety Report 17560587 (Version 1)
Quarter: 2020Q1

REPORT INFORMATION
  Report Type: Spontaneous
  Country: GB (occurrence: GB)
  Receive Date: 20200319
  Receipt Date: 20200319
  Transmission Date: 20200409
  Serious: Yes (Other)
  Sender: FDA-Public Use
  Company Number: GB-UCBSA-2020010335

PATIENT
  Age: 81 Year
  Sex: Male

DRUGS (1)
  1. KEPPRA [Suspect]
     Active Substance: LEVETIRACETAM
     Indication: PRODUCT USED FOR UNKNOWN INDICATION
     Dosage: 2500 MILLIGRAM, TOTAL
     Route: 042
     Dates: start: 20180810

REACTIONS (3)
  - Product quality issue [Unknown]
  - Epilepsy [Unknown]
  - Drug ineffective [Unknown]
